FAERS Safety Report 7950346-5 (Version None)
Quarter: 2011Q4

REPORT INFORMATION
  Report Type: 
  Country: None (occurrence: None)
  Receive Date: 20111130
  Receipt Date: 20111121
  Transmission Date: 20120403
  Serious: Yes (Other)
  Sender: FDA-Public Use
  Company Number: AU-ASTRAZENECA-2011SE71336

PATIENT
  Sex: Female

DRUGS (5)
  1. MICARDIS [Concomitant]
     Route: 048
  2. SLOW-K [Concomitant]
     Route: 048
  3. PANADOL OSTEO [Concomitant]
  4. CRESTOR [Suspect]
     Route: 048
  5. MOBIC [Concomitant]
     Route: 048

REACTIONS (4)
  - BLOOD URIC ACID INCREASED [None]
  - PARALYSIS [None]
  - BACK PAIN [None]
  - RHABDOMYOLYSIS [None]
